FAERS Safety Report 24194619 (Version 1)
Quarter: 2024Q3

REPORT INFORMATION
  Report Type: Spontaneous
  Country: US (occurrence: US)
  Receive Date: 20240809
  Receipt Date: 20240809
  Transmission Date: 20241016
  Serious: Yes (Other)
  Sender: AMNEAL
  Company Number: US-AMNEAL PHARMACEUTICALS-2024-AMRX-02875

PATIENT
  Age: 16 Week
  Sex: Male
  Weight: 0.48 kg

DRUGS (2)
  1. ALYMSYS [Suspect]
     Active Substance: BEVACIZUMAB-MALY
     Indication: Retinopathy of prematurity
     Dosage: 0.625 MG/0.025ML
  2. ALYMSYS [Suspect]
     Active Substance: BEVACIZUMAB-MALY
     Dosage: 0.625 MG/0.025ML

REACTIONS (2)
  - Glaucoma [Recovered/Resolved]
  - Chorioretinal folds [Recovered/Resolved]
